FAERS Safety Report 7456974-8 (Version None)
Quarter: 2011Q2

REPORT INFORMATION
  Report Type: 
  Country: None (occurrence: None)
  Receive Date: 20110504
  Receipt Date: 20101229
  Transmission Date: 20111010
  Serious: Yes (Hospitalization, Other)
  Sender: FDA-Public Use
  Company Number: US-BAYER-201034358NA

PATIENT
  Age: 28 Year
  Sex: Female
  Weight: 80.726 kg

DRUGS (2)
  1. YAZ [Suspect]
     Indication: ORAL CONTRACEPTION
     Dosage: UNK UNK, UNK
     Route: 048
     Dates: start: 20061001, end: 20070613
  2. IBUPROFEN [Concomitant]
     Dosage: 800 MG, UNK
     Route: 048
     Dates: start: 20030920

REACTIONS (6)
  - PULMONARY EMBOLISM [None]
  - TACHYCARDIA [None]
  - DYSPNOEA [None]
  - PULMONARY INFARCTION [None]
  - TACHYPNOEA [None]
  - CHEST DISCOMFORT [None]
